FAERS Safety Report 17724650 (Version 7)
Quarter: 2020Q3

REPORT INFORMATION
  Report Type: Spontaneous
  Country: US (occurrence: US)
  Receive Date: 20200429
  Receipt Date: 20200706
  Transmission Date: 20201102
  Serious: Yes (Other)
  Sender: FDA-Public Use
  Company Number: US-PFIZER INC-2020170871

PATIENT
  Age: 73 Year
  Sex: Female

DRUGS (6)
  1. IBRANCE [Suspect]
     Active Substance: PALBOCICLIB
     Indication: BREAST CANCER METASTATIC
     Dosage: 125 MG
  2. IBRANCE [Suspect]
     Active Substance: PALBOCICLIB
     Dosage: 75 MG, CYCLIC (DAILY; FOR EITHER 18 OR 19 DAYS ON AND 10 TO 12 DAYS OFF)
     Dates: start: 20191029
  3. IBRANCE [Suspect]
     Active Substance: PALBOCICLIB
     Dosage: 100 MG
  4. IBRANCE [Suspect]
     Active Substance: PALBOCICLIB
     Dosage: 75 MG, CYCLIC (21 DAYS, ON; 14 DAYS OFF)
  5. IBRANCE [Suspect]
     Active Substance: PALBOCICLIB
     Dosage: 75 MG, CYCLIC [18 DAYS ON AND DAYS OFF]
  6. FASLODEX [Concomitant]
     Active Substance: FULVESTRANT
     Dosage: UNK

REACTIONS (13)
  - Red blood cell count decreased [Unknown]
  - Weight increased [Unknown]
  - Increased appetite [Unknown]
  - White blood cell count decreased [Unknown]
  - Peripheral swelling [Unknown]
  - Dizziness postural [Not Recovered/Not Resolved]
  - Neutrophil count decreased [Unknown]
  - Platelet disorder [Unknown]
  - White blood cell disorder [Unknown]
  - Haemoglobin decreased [Unknown]
  - Pain [Unknown]
  - Platelet count decreased [Unknown]
  - Eye pruritus [Not Recovered/Not Resolved]
